FAERS Safety Report 5733516-6 (Version None)
Quarter: 2008Q2

REPORT INFORMATION
  Report Type: 
  Country: None (occurrence: None)
  Receive Date: 20080509
  Receipt Date: 20080501
  Transmission Date: 20081010
  Serious: Yes (Hospitalization, Disabling, Other)
  Sender: FDA-Public Use
  Company Number: US-ROCHE-385658

PATIENT
  Sex: Female
  Weight: 65.8 kg

DRUGS (18)
  1. ACCUTANE [Suspect]
     Route: 048
     Dates: start: 19870120, end: 19881001
  2. ACCUTANE [Suspect]
     Route: 048
     Dates: start: 19910101, end: 19920101
  3. ACCUTANE [Suspect]
     Route: 048
     Dates: start: 19940101, end: 19940101
  4. ACCUTANE [Suspect]
     Route: 048
     Dates: start: 19970101, end: 19980101
  5. BIRTH CONTROL PILLS [Concomitant]
     Route: 048
  6. ELDOQUIN [Concomitant]
     Dates: start: 19870101
  7. ERYTHROMYCIN [Concomitant]
     Route: 061
     Dates: start: 19870101
  8. SULFACET-R [Concomitant]
     Dates: start: 19870101, end: 19881001
  9. SULFACET-R [Concomitant]
     Dates: start: 19870101, end: 19881001
  10. SULFACET-R [Concomitant]
     Dates: start: 19870101, end: 19881001
  11. CLEOCIN T [Concomitant]
     Indication: ACNE
  12. MINOCIN [Concomitant]
  13. ERYTHROMYCIN [Concomitant]
     Route: 048
  14. BENZAMYCIN [Concomitant]
     Indication: ACNE
  15. BENZAMYCIN [Concomitant]
  16. RETIN-A [Concomitant]
     Indication: ACNE
  17. BENZACLIN [Concomitant]
     Indication: ACNE
  18. BENZACLIN [Concomitant]

REACTIONS (43)
  - ANAEMIA [None]
  - ARTHRALGIA [None]
  - BACK PAIN [None]
  - BRONCHITIS CHRONIC [None]
  - COLITIS [None]
  - COLITIS ULCERATIVE [None]
  - CONVULSION [None]
  - CROHN'S DISEASE [None]
  - DECREASED APPETITE [None]
  - DEPRESSION [None]
  - DUODENAL ULCER [None]
  - ERUCTATION [None]
  - EYE HAEMORRHAGE [None]
  - FIBROADENOMA OF BREAST [None]
  - GASTRITIS [None]
  - GASTROINTESTINAL DISORDER [None]
  - HAEMATOCHEZIA [None]
  - HERNIA OBSTRUCTIVE [None]
  - HYPERCOAGULATION [None]
  - ILEUS [None]
  - INFLAMMATORY BOWEL DISEASE [None]
  - INSOMNIA [None]
  - INTESTINAL HAEMORRHAGE [None]
  - INTESTINAL OBSTRUCTION [None]
  - JUGULAR VEIN THROMBOSIS [None]
  - LEUKOCYTOSIS [None]
  - MALNUTRITION [None]
  - MULTI-ORGAN DISORDER [None]
  - MUSCULOSKELETAL PAIN [None]
  - NAUSEA [None]
  - OEDEMA PERIPHERAL [None]
  - OESOPHAGITIS [None]
  - PNEUMONIA [None]
  - PNEUMOTHORAX [None]
  - PROCTITIS ULCERATIVE [None]
  - PULMONARY EMBOLISM [None]
  - PYREXIA [None]
  - RASH [None]
  - RECTAL HAEMORRHAGE [None]
  - SINUSITIS [None]
  - THROMBOPHLEBITIS SUPERFICIAL [None]
  - VOMITING [None]
  - WEIGHT DECREASED [None]
